FAERS Safety Report 9291202 (Version 3)
Quarter: 2013Q3

REPORT INFORMATION
  Report Type: Spontaneous
  Country: DE (occurrence: DE)
  Receive Date: 20130515
  Receipt Date: 20130723
  Transmission Date: 20140515
  Serious: Yes (Hospitalization, Other)
  Sender: FDA-Public Use
  Company Number: DE-AMGEN-DEUSP2013034047

PATIENT
  Age: 48 Year
  Sex: Female
  Weight: 60 kg

DRUGS (9)
  1. NEULASTA [Suspect]
     Indication: BREAST CANCER
     Dosage: 6 MG, 1 IN 2 WEEKS
     Route: 058
     Dates: start: 20130309, end: 20130504
  2. NEULASTA [Suspect]
     Dosage: UNK
     Route: 042
     Dates: start: 20130511
  3. TRASTUZUMAB [Suspect]
     Indication: BREAST CANCER
     Dosage: 360 MG, 1 IN 2 WEEKS
     Route: 042
     Dates: start: 20130419, end: 20130503
  4. TRASTUZUMAB [Suspect]
     Dosage: UNK
     Route: 042
     Dates: start: 20130510
  5. ABRAXANE /01116004/ [Suspect]
     Indication: BREAST CANCER
     Dosage: 538 MG, 1 IN 2 WEEKS
     Route: 042
     Dates: start: 20130419, end: 20130503
  6. ABRAXANE /01116004/ [Suspect]
     Dosage: UNK
     Route: 042
     Dates: start: 20130510
  7. CYCLOPHOSPHAMIDE [Suspect]
     Indication: BREAST CANCER
     Dosage: 2000 MG, 1 IN 2 WK
     Route: 042
     Dates: start: 20130607, end: 20130621
  8. CYCLOPHOSPHAMIDE [Suspect]
     Dosage: 1500 MG, 1 IN 2 WK
     Dates: start: 20130605
  9. EPIRUBICIN [Concomitant]
     Indication: BREAST CANCER
     Dosage: 244 MG, 1 IN 2 WEEKS
     Route: 042
     Dates: start: 20130308

REACTIONS (2)
  - Alveolitis [Recovered/Resolved]
  - Febrile neutropenia [Recovered/Resolved]
